FAERS Safety Report 14137971 (Version 1)
Quarter: 2017Q4

REPORT INFORMATION
  Report Type: Spontaneous
  Country: US (occurrence: US)
  Receive Date: 20171027
  Receipt Date: 20171027
  Transmission Date: 20180321
  Serious: No
  Sender: FDA-Public Use
  Company Number: US-MIST-TIR-2017-0865

PATIENT
  Age: 61 Year
  Sex: Female

DRUGS (3)
  1. TIROSINT [Suspect]
     Active Substance: LEVOTHYROXINE SODIUM
     Indication: PRODUCT USED FOR UNKNOWN INDICATION
     Dosage: TIROSINT 50MCG ALTERNATING WITH TIROSINT 75 MCG
     Route: 048
     Dates: start: 20170822, end: 2017
  2. TIROSINT [Suspect]
     Active Substance: LEVOTHYROXINE SODIUM
     Dosage: TIROSINT 50MCG ALTERNATING WITH TIROSINT 75MCG
     Route: 048
     Dates: start: 20170822, end: 2017
  3. TIROSINT [Suspect]
     Active Substance: LEVOTHYROXINE SODIUM
     Indication: PRODUCT USED FOR UNKNOWN INDICATION
     Dosage: TIROSINT 50 MCG ONCE DAILY AND TWO 50 MCG TWICE A WEEK
     Route: 048

REACTIONS (6)
  - Product physical issue [Unknown]
  - Nausea [Unknown]
  - Product measured potency issue [Unknown]
  - Photosensitivity reaction [Recovered/Resolved]
  - Drug ineffective [None]
  - Headache [Unknown]

NARRATIVE: CASE EVENT DATE: 201708
